FAERS Safety Report 10972670 (Version 2)
Quarter: 2015Q2

REPORT INFORMATION
  Report Type: Spontaneous
  Country: US (occurrence: US)
  Receive Date: 20150331
  Receipt Date: 20150525
  Transmission Date: 20150821
  Serious: No
  Sender: FDA-Public Use
  Company Number: US-JNJFOC-20130308445

PATIENT
  Sex: Male
  Weight: 77.11 kg

DRUGS (1)
  1. RISPERIDONE. [Suspect]
     Active Substance: RISPERIDONE
     Indication: PRODUCT USED FOR UNKNOWN INDICATION
     Route: 065

REACTIONS (6)
  - Insomnia [Unknown]
  - Self esteem decreased [Unknown]
  - Laziness [Unknown]
  - Weight increased [Unknown]
  - Acne [Unknown]
  - Breast enlargement [Unknown]
